FAERS Safety Report 9895461 (Version 2)
Quarter: 2014Q1

REPORT INFORMATION
  Report Type: Spontaneous
  Country: US (occurrence: US)
  Receive Date: 20140213
  Receipt Date: 20140213
  Transmission Date: 20141002
  Serious: Yes (Other)
  Sender: FDA-Public Use
  Company Number: US-BRISTOL-MYERS SQUIBB COMPANY-18708396

PATIENT
  Age: 61 Year
  Sex: Female

DRUGS (11)
  1. ORENCIA [Suspect]
     Indication: RHEUMATOID ARTHRITIS
     Dosage: ORENCIA ADMI:13NOV2012,2G9085 ?ORENICA ADMIN:8JAN2013,2H62377+ EXPIRATION DATE:APRIL 2014.
     Route: 042
     Dates: start: 200902, end: 20130122
  2. MULTIVITAMIN [Concomitant]
  3. RECLAST [Concomitant]
  4. METHOTREXATE [Concomitant]
  5. FOLIC ACID [Concomitant]
  6. POTASSIUM [Concomitant]
     Dosage: POTASSIUM CALCIUM
  7. CARVEDILOL [Concomitant]
  8. BABY ASPIRIN [Concomitant]
  9. FISH OIL [Concomitant]
  10. PREDNISONE [Concomitant]
  11. WARFARIN [Concomitant]

REACTIONS (1)
  - Mycosis fungoides [Unknown]
